FAERS Safety Report 6045119-7 (Version None)
Quarter: 2009Q1

REPORT INFORMATION
  Report Type: 
  Country: None (occurrence: None)
  Receive Date: 20090116
  Receipt Date: 20090116
  Transmission Date: 20090719
  Serious: Yes (Other)
  Sender: FDA-Public Use
  Company Number: None

PATIENT
  Sex: Female
  Weight: 70.3075 kg

DRUGS (2)
  1. VENLAFAXINE HCL 37.5 MG TEVA USA [Suspect]
     Indication: DEPRESSION
     Dosage: 1 PER DAY PO
     Route: 048
  2. LEVOTHYROXINE SODIUM [Concomitant]

REACTIONS (4)
  - CHILLS [None]
  - HEADACHE [None]
  - HEPATITIS [None]
  - OROPHARYNGEAL PAIN [None]
